FAERS Safety Report 7770700-4 (Version None)
Quarter: 2011Q3

REPORT INFORMATION
  Report Type: 
  Country: None (occurrence: None)
  Receive Date: 20110922
  Receipt Date: 20100901
  Transmission Date: 20111222
  Serious: Yes (Other)
  Sender: FDA-Public Use
  Company Number: US-ASTRAZENECA-2010SE41413

PATIENT
  Age: 74 Year
  Sex: Female

DRUGS (8)
  1. SEROQUEL [Suspect]
     Route: 048
  2. MIRAPEK [Concomitant]
  3. PRAMIPRAXOLE [Concomitant]
  4. FLUOXETINE [Concomitant]
  5. OMEPRAZOLE [Concomitant]
  6. SEROQUEL [Suspect]
     Route: 048
  7. LISINOPRIL [Concomitant]
  8. SOMA [Concomitant]

REACTIONS (1)
  - CEREBROVASCULAR ACCIDENT [None]
